FAERS Safety Report 19313943 (Version 1)
Quarter: 2021Q2

REPORT INFORMATION
  Report Type: Spontaneous
  Country: US (occurrence: US)
  Receive Date: 20210527
  Receipt Date: 20210527
  Transmission Date: 20210717
  Serious: Yes (Other)
  Sender: FDA-Public Use
  Company Number: US-BIO PRODUCTS LABORATORY LTD-2112034

PATIENT
  Sex: Male

DRUGS (4)
  1. SILTUXIMAB [Suspect]
     Active Substance: SILTUXIMAB
  2. HUMAN NORMAL IMMUNOGLOBULIN [Suspect]
     Active Substance: HUMAN IMMUNOGLOBULIN G
     Indication: PEMPHIGUS
     Route: 042
  3. STEROIDS [Suspect]
     Active Substance: UNSPECIFIED INGREDIENT
     Route: 048
  4. RITUXIMAB. [Suspect]
     Active Substance: RITUXIMAB

REACTIONS (3)
  - Pulmonary embolism [Recovered/Resolved]
  - Drug effective for unapproved indication [Unknown]
  - Off label use [Unknown]
